FAERS Safety Report 14546694 (Version 1)
Quarter: 2018Q1

REPORT INFORMATION
  Report Type: Spontaneous
  Country: US (occurrence: US)
  Receive Date: 20180219
  Receipt Date: 20180219
  Transmission Date: 20180509
  Serious: No
  Sender: FDA-Public Use
  Company Number: US-IPSEN BIOPHARMACEUTICALS, INC.-2017-00968

PATIENT
  Age: 58 Year
  Sex: Female

DRUGS (2)
  1. ELIDEL 1% EYE CREAM [Concomitant]
     Indication: PRODUCT USED FOR UNKNOWN INDICATION
  2. DYSPORT [Suspect]
     Active Substance: ABOBOTULINUMTOXINA
     Indication: SKIN WRINKLING
     Dosage: 50 UNITS
     Route: 030
     Dates: start: 20170120, end: 20170120

REACTIONS (3)
  - Headache [Recovered/Resolved]
  - Eyelid oedema [Recovered/Resolved]
  - Product preparation error [Unknown]

NARRATIVE: CASE EVENT DATE: 20170122
